FAERS Safety Report 6390067 (Version 3)
Quarter: 2019Q3

REPORT INFORMATION
  Report Type: Spontaneous
  Country: GB (occurrence: GB)
  Receive Date: 20070823
  Receipt Date: 20190701
  Transmission Date: 20191005
  Serious: Yes (Other)
  Sender: FDA-Public Use
  Company Number: GB-PFIZER INC-2007068730

PATIENT
  Age: 61 Year
  Sex: Male

DRUGS (3)
  1. ADENOSINE. [Suspect]
     Active Substance: ADENOSINE
     Dosage: UNK
     Route: 042
  2. DOXAZOSIN MESILATE [Suspect]
     Active Substance: DOXAZOSIN MESYLATE
     Dosage: UNK
  3. BENDROFLUMETHIAZIDE [Suspect]
     Active Substance: BENDROFLUMETHIAZIDE
     Dosage: UNK

REACTIONS (2)
  - Tachycardia [Unknown]
  - Atrial fibrillation [Unknown]
